FAERS Safety Report 17604799 (Version 1)
Quarter: 2020Q1

REPORT INFORMATION
  Report Type: Spontaneous
  Country: US (occurrence: US)
  Receive Date: 20200331
  Receipt Date: 20200331
  Transmission Date: 20200409
  Serious: Yes (Hospitalization)
  Sender: FDA-Public Use
  Company Number: US-IGSA-SR10010101

PATIENT
  Age: 23 Year
  Sex: Female

DRUGS (2)
  1. GAMUNEX-C [Suspect]
     Active Substance: HUMAN IMMUNOGLOBULIN G
     Indication: DEMYELINATING POLYNEUROPATHY
     Dosage: 50 MG, Q.2WK.
     Route: 042
     Dates: start: 20200301, end: 20200301
  2. GAMUNEX-C [Suspect]
     Active Substance: HUMAN IMMUNOGLOBULIN G
     Dosage: 50 MG, Q.2WK.
     Route: 042
     Dates: start: 20190722

REACTIONS (7)
  - Catatonia [Unknown]
  - Multiple injuries [Unknown]
  - Spinal fracture [Unknown]
  - Therapy cessation [Unknown]
  - Suicide attempt [Unknown]
  - Pelvic fracture [Unknown]
  - Femur fracture [Unknown]

NARRATIVE: CASE EVENT DATE: 202003
